FAERS Safety Report 4785654-2 (Version None)
Quarter: 2005Q3

REPORT INFORMATION
  Report Type: 
  Country: None (occurrence: None)
  Receive Date: 20050929
  Receipt Date: 20050915
  Transmission Date: 20060218
  Serious: Yes (Hospitalization)
  Sender: FDA-Public Use
  Company Number: CLOF-10102

PATIENT
  Age: 15 Year
  Sex: Male

DRUGS (2)
  1. CLOLAR [Suspect]
     Indication: ACUTE LYMPHOCYTIC LEUKAEMIA
     Dosage: 52 MG/M2 QD IV
     Route: 042
     Dates: start: 20050701, end: 20050829
  2. GLEEVEC [Suspect]
     Indication: ACUTE LYMPHOCYTIC LEUKAEMIA
     Dosage: 400 MG/M2
     Dates: start: 20050701, end: 20050101

REACTIONS (2)
  - PANCREATITIS [None]
  - THERAPY NON-RESPONDER [None]
